FAERS Safety Report 12949655 (Version 1)
Quarter: 2016Q4

REPORT INFORMATION
  Report Type: Report from Study
  Country: BR (occurrence: BR)
  Receive Date: 20161117
  Receipt Date: 20161117
  Transmission Date: 20170207
  Serious: Yes (Other)
  Sender: FDA-Public Use
  Company Number: PHHY2016BR140667

PATIENT
  Sex: Male
  Weight: 65 kg

DRUGS (6)
  1. RITALIN [Suspect]
     Active Substance: METHYLPHENIDATE HYDROCHLORIDE
     Indication: ATTENTION DEFICIT/HYPERACTIVITY DISORDER
     Dosage: 2 DF, (TWICE A WEEK EVERY OTHER DAY AND HE DOES NOT USE ON SATURDAYS AND SUNDAYS) (1 MONTH AGO)
     Route: 048
  2. RITALIN LA [Suspect]
     Active Substance: METHYLPHENIDATE HYDROCHLORIDE
     Dosage: 30 MG, UNK
     Route: 065
  3. CYMBI//AMPICILLIN TRIHYDRATE [Concomitant]
     Indication: EMOTIONAL DISORDER
  4. RITALIN LA [Suspect]
     Active Substance: METHYLPHENIDATE HYDROCHLORIDE
     Indication: ATTENTION DEFICIT/HYPERACTIVITY DISORDER
     Dosage: 10 MG, QD
     Route: 048
  5. RITALIN LA [Suspect]
     Active Substance: METHYLPHENIDATE HYDROCHLORIDE
     Dosage: 1 DF (EVERY OTHER DAY FROM MONDAY TO FRIDAY) (3 YEARS AGO)
     Route: 048
  6. CYMBI//AMPICILLIN TRIHYDRATE [Concomitant]
     Indication: DEPRESSION
     Dosage: 1 DF, QD
     Route: 048

REACTIONS (11)
  - Headache [Not Recovered/Not Resolved]
  - Anxiety [Unknown]
  - Drug dependence [Unknown]
  - Abdominal pain upper [Not Recovered/Not Resolved]
  - Nausea [Not Recovered/Not Resolved]
  - Major depression [Not Recovered/Not Resolved]
  - Irritability [Not Recovered/Not Resolved]
  - Agitation [Not Recovered/Not Resolved]
  - Emotional disorder [Unknown]
  - Disturbance in attention [Unknown]
  - Psychomotor hyperactivity [Not Recovered/Not Resolved]
